FAERS Safety Report 4854098-7 (Version None)
Quarter: 2005Q4

REPORT INFORMATION
  Report Type: 
  Country: None (occurrence: None)
  Receive Date: 20051213
  Receipt Date: 20051207
  Transmission Date: 20060501
  Serious: Yes (Hospitalization)
  Sender: FDA-Public Use
  Company Number: 050151

PATIENT
  Age: 88 Year
  Sex: Female
  Weight: 57.6068 kg

DRUGS (3)
  1. GOLYTELY [Suspect]
     Indication: COLONOSCOPY
     Dosage: 8OZ/DAILY/PO; 2 - 3 YEARS
     Route: 048
  2. HIGH BLOOD PRESSURE MED [Concomitant]
  3. AROMASIN [Concomitant]

REACTIONS (5)
  - ABDOMINAL DISTENSION [None]
  - ABDOMINAL PAIN [None]
  - COMA [None]
  - INFECTION [None]
  - VOMITING [None]
